FAERS Safety Report 4948657-0 (Version None)
Quarter: 2006Q1

REPORT INFORMATION
  Report Type: 
  Country: None (occurrence: None)
  Receive Date: 20060313
  Receipt Date: 20060228
  Transmission Date: 20060701
  Serious: Yes (Hospitalization)
  Sender: FDA-Public Use
  Company Number: 2006RR-01745

PATIENT
  Age: 62 Year
  Sex: Male

DRUGS (4)
  1. ASPIRIN [Suspect]
     Indication: HIP ARTHROPLASTY
     Dosage: 150 MG, QD, ORAL
     Route: 048
     Dates: end: 20060206
  2. IBUPROFEN [Suspect]
     Indication: HIP ARTHROPLASTY
     Dosage: PRN
  3. BENDROFLUAZIDE(BENDROFLUAZIDE) [Concomitant]
  4. ATENOLOL TABLETS BP 50 MG (ATENOLOLO) [Concomitant]

REACTIONS (3)
  - EROSIVE DUODENITIS [None]
  - GASTROINTESTINAL HAEMORRHAGE [None]
  - MELAENA [None]
